FAERS Safety Report 10984931 (Version 1)
Quarter: 2015Q2

REPORT INFORMATION
  Report Type: Spontaneous
  Country: US (occurrence: US)
  Receive Date: 20150403
  Receipt Date: 20150403
  Transmission Date: 20150821
  Serious: Yes (Other)
  Sender: FDA-Public Use
  Company Number: US-ASTRAZENECA-2015SE30468

PATIENT
  Age: 77 Year
  Sex: Male

DRUGS (9)
  1. NEXIUM [Suspect]
     Active Substance: ESOMEPRAZOLE MAGNESIUM
     Indication: BARRETT^S OESOPHAGUS
     Dosage: OCCASIONALY TWICE DAILY
     Route: 048
  2. PRILOSEC [Suspect]
     Active Substance: OMEPRAZOLE MAGNESIUM
     Indication: CHOKING
     Route: 048
     Dates: start: 1980
  3. NEXIUM [Suspect]
     Active Substance: ESOMEPRAZOLE MAGNESIUM
     Indication: GASTROOESOPHAGEAL REFLUX DISEASE
     Dosage: OCCASIONALY TWICE DAILY
     Route: 048
  4. PRILOSEC [Suspect]
     Active Substance: OMEPRAZOLE MAGNESIUM
     Indication: BARRETT^S OESOPHAGUS
     Route: 048
     Dates: start: 1980
  5. NEXIUM [Suspect]
     Active Substance: ESOMEPRAZOLE MAGNESIUM
     Indication: BARRETT^S OESOPHAGUS
     Route: 048
     Dates: start: 2001
  6. NEXIUM [Suspect]
     Active Substance: ESOMEPRAZOLE MAGNESIUM
     Indication: GASTROOESOPHAGEAL REFLUX DISEASE
     Route: 048
     Dates: start: 2001
  7. NEXIUM [Suspect]
     Active Substance: ESOMEPRAZOLE MAGNESIUM
     Indication: CHOKING
     Dosage: OCCASIONALY TWICE DAILY
     Route: 048
  8. NEXIUM [Suspect]
     Active Substance: ESOMEPRAZOLE MAGNESIUM
     Indication: CHOKING
     Route: 048
     Dates: start: 2001
  9. PRILOSEC [Suspect]
     Active Substance: OMEPRAZOLE MAGNESIUM
     Indication: GASTROOESOPHAGEAL REFLUX DISEASE
     Route: 048
     Dates: start: 1980

REACTIONS (13)
  - Aortic aneurysm [Unknown]
  - Jaw disorder [Unknown]
  - Intentional product misuse [Unknown]
  - Apparent death [Unknown]
  - Oesophageal stenosis [Recovered/Resolved]
  - Coronary artery disease [Unknown]
  - Cerebrovascular accident [Unknown]
  - Pneumonia [Unknown]
  - Hiatus hernia [Unknown]
  - Amnesia [Unknown]
  - Bladder cancer [Unknown]
  - Peripheral artery aneurysm [Unknown]
  - Myalgia [Unknown]
